FAERS Safety Report 24214017 (Version 2)
Quarter: 2024Q3

REPORT INFORMATION
  Report Type: Report from Study
  Country: AE (occurrence: AE)
  Receive Date: 20240815
  Receipt Date: 20240903
  Transmission Date: 20241017
  Serious: Yes (Other)
  Sender: ROCHE
  Company Number: AE-ROCHE-10000051564

PATIENT
  Age: 48 Year
  Sex: Male

DRUGS (2)
  1. ALECENSA [Suspect]
     Active Substance: ALECTINIB HYDROCHLORIDE
     Indication: Product used for unknown indication
     Route: 065
  2. ALECENSA [Suspect]
     Active Substance: ALECTINIB HYDROCHLORIDE
     Route: 065

REACTIONS (7)
  - Radiation necrosis [Unknown]
  - Vasogenic cerebral oedema [Unknown]
  - Lacunar stroke [Unknown]
  - Adenocarcinoma [Unknown]
  - Hypertransaminasaemia [Unknown]
  - Bradycardia [Unknown]
  - Microangiopathy [Unknown]

NARRATIVE: CASE EVENT DATE: 20230717
